FAERS Safety Report 12243987 (Version 1)
Quarter: 2016Q2

REPORT INFORMATION
  Report Type: Report from Study
  Country: AU (occurrence: AU)
  Receive Date: 20160406
  Receipt Date: 20160406
  Transmission Date: 20160815
  Serious: Yes (Other)
  Sender: FDA-Public Use
  Company Number: AU-ABBVIE-16P-008-1597211-00

PATIENT
  Age: 79 Year
  Sex: Male

DRUGS (1)
  1. LUPRON DEPOT [Suspect]
     Active Substance: LEUPROLIDE ACETATE
     Indication: PROSTATE CANCER
     Route: 050
     Dates: start: 20010101

REACTIONS (5)
  - Lip and/or oral cavity cancer [Recovered/Resolved]
  - Tongue neoplasm malignant stage unspecified [Recovered/Resolved]
  - Tongue neoplasm malignant stage unspecified [Unknown]
  - Lip and/or oral cavity cancer [Unknown]
  - Surgery [Recovered/Resolved]

NARRATIVE: CASE EVENT DATE: 2013
